FAERS Safety Report 8242221-6 (Version None)
Quarter: 2012Q1

REPORT INFORMATION
  Report Type: 
  Country: None (occurrence: None)
  Receive Date: 20120329
  Receipt Date: 20120321
  Transmission Date: 20120608
  Serious: Yes (Other)
  Sender: FDA-Public Use
  Company Number: CA-UCBSA-052744

PATIENT
  Age: 50 Year
  Sex: Male
  Weight: 102.5 kg

DRUGS (4)
  1. CIMZIA [Suspect]
     Route: 058
     Dates: start: 20110714, end: 20110811
  2. TRISTIK [Concomitant]
     Indication: DEPRESSION
     Route: 048
  3. CIMZIA [Suspect]
     Indication: ANKYLOSING SPONDYLITIS
     Route: 058
     Dates: start: 20110825
  4. TYLENOL ARTHRITE [Concomitant]
     Indication: PAIN
     Route: 048

REACTIONS (2)
  - HERPES ZOSTER [None]
  - BURSITIS [None]
